FAERS Safety Report 5361745-2 (Version None)
Quarter: 2007Q2

REPORT INFORMATION
  Report Type: 
  Country: None (occurrence: None)
  Receive Date: 20070615
  Receipt Date: 20070605
  Transmission Date: 20071010
  Serious: No
  Sender: FDA-Public Use
  Company Number: ORACEA-2007-0025

PATIENT
  Age: 24 Year
  Sex: Female
  Weight: 68.0396 kg

DRUGS (1)
  1. ORACEA [Suspect]
     Indication: ROSACEA
     Dosage: 40 MG, QD
     Dates: start: 20070308, end: 20070501

REACTIONS (7)
  - ALCOHOL USE [None]
  - BURNING SENSATION [None]
  - HYPERSENSITIVITY [None]
  - HYPOAESTHESIA ORAL [None]
  - MEMORY IMPAIRMENT [None]
  - PARAESTHESIA ORAL [None]
  - SKIN DISCOLOURATION [None]
